FAERS Safety Report 4868409-X (Version None)
Quarter: 2005Q4

REPORT INFORMATION
  Report Type: 
  Country: None (occurrence: None)
  Receive Date: 20051229
  Receipt Date: 20051227
  Transmission Date: 20060501
  Serious: Yes (Other)
  Sender: FDA-Public Use
  Company Number: DE-GLAXOSMITHKLINE-D0048319A

PATIENT
  Age: 73 Year
  Sex: Male
  Weight: 66 kg

DRUGS (3)
  1. AVANDIA [Suspect]
     Indication: DIABETES MELLITUS
     Dosage: 4MG TWICE PER DAY
     Route: 065
     Dates: start: 20051129, end: 20051219
  2. AMLODIPINE [Concomitant]
     Indication: HYPERTENSION
     Dosage: 5MG SINGLE DOSE
     Route: 065
     Dates: start: 20050705
  3. LISINOPRIL [Concomitant]
     Indication: HYPERTENSION
     Dosage: 5MG TWICE PER DAY
     Route: 065
     Dates: start: 20001228

REACTIONS (2)
  - MYALGIA [None]
  - PAIN IN EXTREMITY [None]
